FAERS Safety Report 22270386 (Version 1)
Quarter: 2023Q2

REPORT INFORMATION
  Report Type: Spontaneous
  Country: US (occurrence: None)
  Receive Date: 20230428
  Receipt Date: 20230428
  Transmission Date: 20230722
  Serious: Yes (Other)
  Sender: FDA-Public Use
  Company Number: None

PATIENT
  Age: 63 Year
  Sex: Female

DRUGS (20)
  1. ENBREL [Suspect]
     Active Substance: ETANERCEPT
     Indication: Rheumatoid arthritis
     Dosage: FREQUENCY : WEEKLY;?
     Route: 058
     Dates: start: 20210525
  2. ATORVASTATIN [Concomitant]
     Active Substance: ATORVASTATIN
  3. ATORVASTATIN [Concomitant]
     Active Substance: ATORVASTATIN
  4. BENZONATATE CAP [Concomitant]
  5. BREO ELLIPTA INH [Concomitant]
  6. BREO ELLIPTA INH [Concomitant]
  7. DUPIXENT [Concomitant]
     Active Substance: DUPILUMAB
  8. ELIQUIS [Concomitant]
     Active Substance: APIXABAN
  9. FLECAINIDE TAB 100MG [Concomitant]
  10. FLECAINIDE [Concomitant]
     Active Substance: FLECAINIDE
  11. FLUTICASONE SPR [Concomitant]
  12. FOLIC ACID TAB [Concomitant]
  13. LEVOTHYROXIN TAB [Concomitant]
  14. METHOTREXATE [Concomitant]
     Active Substance: METHOTREXATE
  15. METOPROL SUC TAB ER [Concomitant]
  16. METOPROL TAR TAB [Concomitant]
  17. MONTELUKAST SODIUM [Concomitant]
     Active Substance: MONTELUKAST SODIUM
  18. VENTOLIN HFA AER [Concomitant]
  19. VITAMIN D CAP [Concomitant]
  20. ZYRTEC ALLGY TAB [Concomitant]

REACTIONS (1)
  - Upper respiratory tract infection [None]

NARRATIVE: CASE EVENT DATE: 20230320
